FAERS Safety Report 7224337-6 (Version None)
Quarter: 2011Q1

REPORT INFORMATION
  Report Type: 
  Country: None (occurrence: None)
  Receive Date: 20110113
  Receipt Date: 20110110
  Transmission Date: 20110831
  Serious: Yes (Death, Hospitalization)
  Sender: FDA-Public Use
  Company Number: FR-BRISTOL-MYERS SQUIBB COMPANY-15480080

PATIENT
  Age: 79 Year
  Sex: Male

DRUGS (6)
  1. APROVEL TABS 150 MG [Suspect]
     Dosage: TAB
  2. STAGID [Suspect]
     Dosage: STAGID 700 MG TABLET
  3. ALLOPURINOL [Suspect]
  4. FURADANTINE [Suspect]
     Dosage: FURADANTINE 50 MG CAPS DEC09:APR10: 50 MG EVERY OTHER DAY. 12JUN2010:5JUL2010:50MG 3/D.
     Dates: start: 20091201, end: 20100705
  5. KARDEGIC [Suspect]
     Dosage: KARDEGIC 75 MG SACHET
  6. TENORMIN [Suspect]
     Dosage: 1DF:0.5 UNIT NOS TENORMINE 50 MG TABLET

REACTIONS (1)
  - HEPATIC FAILURE [None]
